FAERS Safety Report 19398017 (Version 1)
Quarter: 2021Q2

REPORT INFORMATION
  Report Type: Spontaneous
  Country: US (occurrence: US)
  Receive Date: 20210609
  Receipt Date: 20210609
  Transmission Date: 20210717
  Serious: Yes (Other)
  Sender: FDA-Public Use
  Company Number: None

PATIENT
  Age: 16 Year
  Sex: Female
  Weight: 90 kg

DRUGS (1)
  1. SINGULAIR [Suspect]
     Active Substance: MONTELUKAST SODIUM
     Indication: MULTIPLE ALLERGIES
     Dosage: ?          QUANTITY:1 TABLET(S);?
     Route: 048

REACTIONS (12)
  - Headache [None]
  - Anxiety [None]
  - Suicidal ideation [None]
  - Pain [None]
  - Somnambulism [None]
  - Irritability [None]
  - Mental disorder [None]
  - Vocal cord dysfunction [None]
  - Anger [None]
  - Depression [None]
  - Aggression [None]
  - Crying [None]
